FAERS Safety Report 18604436 (Version 1)
Quarter: 2020Q4

REPORT INFORMATION
  Report Type: Spontaneous
  Country: FR (occurrence: FR)
  Receive Date: 20201211
  Receipt Date: 20201211
  Transmission Date: 20210114
  Serious: Yes (Death, Other)
  Sender: FDA-Public Use
  Company Number: FR-MICRO LABS LIMITED-ML2020-03649

PATIENT
  Age: 63 Year
  Sex: Male

DRUGS (11)
  1. LEVETIRACETAM. [Suspect]
     Active Substance: LEVETIRACETAM
     Indication: STATUS EPILEPTICUS
  2. MIDAZOLAM. [Suspect]
     Active Substance: MIDAZOLAM
     Indication: STATUS EPILEPTICUS
     Dosage: CONTINUOUS INFUSION
  3. NOREPINEPHRINE. [Concomitant]
     Active Substance: NOREPINEPHRINE
     Dosage: 1.2 MG/KG/MIN
  4. THIOPENTAL [Suspect]
     Active Substance: THIOPENTAL
     Indication: STATUS EPILEPTICUS
     Dosage: BOLUS
  5. SODIUM BICARBONATE. [Concomitant]
     Active Substance: SODIUM BICARBONATE
     Indication: METABOLIC ACIDOSIS
  6. ISOPRENALINE [Concomitant]
     Active Substance: ISOPROTERENOL HYDROCHLORIDE
     Dosage: SYRINGE PUMP INFUSION
  7. HYDROCORTISONE HEMISUCCINATE [Concomitant]
     Active Substance: HYDROCORTISONE HEMISUCCINATE
  8. ARGIPRESSIN [Concomitant]
     Active Substance: ARGIPRESSIN
  9. ALBUMIN [Concomitant]
     Active Substance: ALBUMIN HUMAN
  10. CLONAZEPAM. [Suspect]
     Active Substance: CLONAZEPAM
     Indication: STATUS EPILEPTICUS
     Dosage: BOLUS
  11. FIBRINOGEN [Concomitant]
     Active Substance: FIBRINOGEN HUMAN

REACTIONS (1)
  - Drug ineffective [Fatal]
